FAERS Safety Report 14566923 (Version 1)
Quarter: 2018Q1

REPORT INFORMATION
  Report Type: Spontaneous
  Country: US (occurrence: US)
  Receive Date: 20180223
  Receipt Date: 20180223
  Transmission Date: 20180509
  Serious: No
  Sender: FDA-Public Use
  Company Number: US-HORIZON-PEN-0111-2018

PATIENT
  Sex: Female

DRUGS (1)
  1. PENNSAID [Suspect]
     Active Substance: DICLOFENAC SODIUM
     Indication: ARTHRITIS
     Dosage: 1 PACKET IN THE MORNING AND 1 IN THE NIGHT
     Dates: start: 20180212, end: 20180215

REACTIONS (4)
  - Skin exfoliation [Unknown]
  - Skin texture abnormal [Unknown]
  - Off label use [Unknown]
  - Pruritus [Unknown]
